FAERS Safety Report 8431659 (Version 8)
Quarter: 2012Q4

REPORT INFORMATION
  Report Type: 
  Country: US (occurrence: US)
  Receive Date: 20120228
  Receipt Date: 20121022
  Transmission Date: 20130627
  Serious: Yes (Hospitalization, Other)
  Sender: FDA-Public Use
  Company Number: US-009507513-1202USA03895

PATIENT

DRUGS (5)
  1. FOSAMAX [Suspect]
     Indication: OSTEOPOROSIS
     Dosage: 70 mg, UNK
     Route: 048
     Dates: start: 1996, end: 201102
  2. FOSAMAX [Suspect]
     Dosage: 10 mg, UNK
     Route: 048
     Dates: start: 20000501
  3. FOSAMAX [Suspect]
     Dosage: 70 mg, qw
     Route: 048
     Dates: start: 20010424
  4. FOSAMAX [Suspect]
     Indication: OSTEOPOROSIS
     Dosage: 70 mg, qw
     Route: 048
     Dates: start: 20080417
  5. FOSAMAX [Suspect]
     Indication: OSTEOPOROSIS
     Dosage: 70 mg, qw
     Dates: start: 20081009

REACTIONS (27)
  - Femur fracture [Unknown]
  - Thrombocytopenia [Unknown]
  - Low turnover osteopathy [Unknown]
  - Gingival disorder [Unknown]
  - Oral disorder [Unknown]
  - Vitamin D deficiency [Unknown]
  - Gingivitis [Unknown]
  - Uterine disorder [Unknown]
  - Blood pressure increased [Unknown]
  - Tendonitis [Unknown]
  - Mitral valve prolapse [Unknown]
  - Cataract [Unknown]
  - Tooth disorder [Unknown]
  - Palpitations [Unknown]
  - Keloid scar [Unknown]
  - Hypertrophic scar [Unknown]
  - Increased tendency to bruise [Unknown]
  - Incision site haematoma [Recovered/Resolved]
  - Fall [Unknown]
  - Contusion [Unknown]
  - Fracture [Unknown]
  - Rotator cuff syndrome [Unknown]
  - Joint dislocation [Unknown]
  - Haemorrhoids [Unknown]
  - Blood glucose increased [Unknown]
  - Hysteroscopy [Unknown]
  - Back pain [Unknown]
